FAERS Safety Report 12255549 (Version 1)
Quarter: 2016Q2

REPORT INFORMATION
  Report Type: Spontaneous
  Country: US (occurrence: None)
  Receive Date: 20160411
  Receipt Date: 20160411
  Transmission Date: 20160815
  Serious: No
  Sender: FDA-Public Use
  Company Number: None

PATIENT
  Age: 38 Year
  Sex: Female

DRUGS (14)
  1. SIMPONI [Suspect]
     Active Substance: GOLIMUMAB
     Indication: ANKYLOSING SPONDYLITIS
     Route: 058
     Dates: start: 20160204
  2. AZASITE [Concomitant]
     Active Substance: AZITHROMYCIN MONOHYDRATE
  3. CEPHALEXIN. [Concomitant]
     Active Substance: CEPHALEXIN
  4. METHYLPRED [Concomitant]
     Active Substance: METHYLPREDNISOLONE
  5. ERYTHROMYCIN. [Concomitant]
     Active Substance: ERYTHROMYCIN
  6. PANTOPRAZOLE [Concomitant]
     Active Substance: PANTOPRAZOLE SODIUM
  7. FLUTICASONE [Concomitant]
     Active Substance: FLUTICASONE\FLUTICASONE PROPIONATE
  8. BUT/APAP/CAF [Concomitant]
  9. ESCITALOPRAM [Concomitant]
     Active Substance: ESCITALOPRAM OXALATE
  10. BENZONATATE. [Concomitant]
     Active Substance: BENZONATATE
  11. AMOXICILLIN. [Concomitant]
     Active Substance: AMOXICILLIN
  12. LEVOFLOXACIN. [Concomitant]
     Active Substance: LEVOFLOXACIN
  13. ZORVOLEX [Concomitant]
     Active Substance: DICLOFENAC
  14. NEO/POLY/DEZ [Concomitant]

REACTIONS (2)
  - Mental disorder [None]
  - Pain [None]

NARRATIVE: CASE EVENT DATE: 2016
